FAERS Safety Report 6445824-4 (Version None)
Quarter: 2009Q4

REPORT INFORMATION
  Report Type: 
  Country: None (occurrence: None)
  Receive Date: 20091119
  Receipt Date: 20091109
  Transmission Date: 20100525
  Serious: Yes (Hospitalization)
  Sender: FDA-Public Use
  Company Number: US-BIOGENIDEC-2009BI030970

PATIENT
  Sex: Male

DRUGS (2)
  1. AVONEX [Suspect]
     Indication: MULTIPLE SCLEROSIS
     Route: 030
  2. NOVANTRONE [Concomitant]

REACTIONS (4)
  - DEEP VEIN THROMBOSIS [None]
  - LEG AMPUTATION [None]
  - LIMB OPERATION [None]
  - THROMBOSIS [None]
